FAERS Safety Report 14485737 (Version 1)
Quarter: 2018Q1

REPORT INFORMATION
  Report Type: Spontaneous
  Country: US (occurrence: US)
  Receive Date: 20180205
  Receipt Date: 20180205
  Transmission Date: 20180509
  Serious: Yes (Hospitalization, Other)
  Sender: FDA-Public Use
  Company Number: US-DSJP-DSU-2017-133062

PATIENT

DRUGS (1)
  1. BENICAR HCT [Suspect]
     Active Substance: HYDROCHLOROTHIAZIDE\OLMESARTAN MEDOXOMIL
     Indication: HYPERTENSION
     Dosage: 40-25 MG , 1 DF
     Route: 048
     Dates: start: 20100419, end: 20170729

REACTIONS (6)
  - Gastrooesophageal reflux disease [Unknown]
  - Diverticulitis [Recovered/Resolved]
  - Cholelithiasis [Recovered/Resolved]
  - Sprue-like enteropathy [Recovering/Resolving]
  - Abdominal hernia [Unknown]
  - Acute kidney injury [Recovered/Resolved]

NARRATIVE: CASE EVENT DATE: 20100622
